FAERS Safety Report 8276349 (Version 3)
Quarter: 2012Q4

REPORT INFORMATION
  Report Type: 
  Country: ES (occurrence: ES)
  Receive Date: 20111206
  Receipt Date: 20121105
  Transmission Date: 20130627
  Serious: Yes (Hospitalization, Other)
  Sender: FDA-Public Use
  Company Number: ES-PFIZER INC-2011293220

PATIENT
  Age: 57 Year
  Sex: Male

DRUGS (13)
  1. ZYVOXID [Suspect]
     Indication: ENTEROCOCCAL BACTEREMIA
     Dosage: 600 mg, 2x/day
     Route: 042
     Dates: start: 20110811, end: 20110813
  2. ZYVOXID [Interacting]
     Indication: PLEURAL INFECTION
  3. ZYVOXID [Interacting]
     Indication: STAPHYLOCOCCAL INFECTION
  4. DOLANTINA [Interacting]
     Indication: POSTOPERATIVE ANALGESIA
     Dosage: 15 mg, hour
     Route: 041
     Dates: start: 20110802, end: 20110813
  5. DOLANTINA [Interacting]
     Indication: ANALGESIC THERAPY
  6. ANIDULAFUNGIN [Concomitant]
     Dosage: 100 mg, 1x/day
  7. MERONEM [Concomitant]
     Dosage: 1 g, 3x/day
     Route: 042
  8. PROPOFOL [Concomitant]
     Dosage: 300 mg/hour
  9. AMIKACIN [Concomitant]
     Dosage: 1.2 g/24 hours
  10. ENOXAPARIN [Concomitant]
     Dosage: 40 mg/24hr
  11. ACTRAPID [Concomitant]
     Dosage: 50 IU, daily
  12. MIDAZOLAM [Concomitant]
     Indication: HYPOVENTILATION
     Dosage: 7 mg, UNK
  13. MEPERIDINE [Concomitant]
     Indication: ANALGESIA
     Dosage: 15 mg/h
     Route: 041

REACTIONS (9)
  - Serotonin syndrome [Recovered/Resolved]
  - Drug interaction [Recovered/Resolved]
  - Tonic clonic movements [Recovered/Resolved]
  - Hyperreflexia [Recovered/Resolved]
  - Metabolic acidosis [Not Recovered/Not Resolved]
  - Pyrexia [Recovering/Resolving]
  - Leukocytosis [Recovering/Resolving]
  - Inflammation [Recovered/Resolved]
  - Hypotension [Recovering/Resolving]
